FAERS Safety Report 5958203-0 (Version None)
Quarter: 2008Q4

REPORT INFORMATION
  Report Type: 
  Country: None (occurrence: None)
  Receive Date: 20081117
  Receipt Date: 20081028
  Transmission Date: 20090506
  Serious: Yes (Hospitalization)
  Sender: FDA-Public Use
  Company Number: 2008-GWUS-0887

PATIENT
  Age: 80 Year
  Sex: Female

DRUGS (2)
  1. ALDARA [Suspect]
     Indication: ACTINIC KERATOSIS
     Dosage: APPLICATION - 2XW - TOPICAL
     Route: 061
  2. ALDARA [Suspect]
     Indication: BOWEN'S DISEASE
     Dosage: APPLICATION - 2XW - TOPICAL
     Route: 061

REACTIONS (5)
  - APPLICATION SITE EROSION [None]
  - APPLICATION SITE ERYTHEMA [None]
  - APPLICATION SITE OEDEMA [None]
  - CARDIAC FAILURE [None]
  - KERATOACANTHOMA [None]
